FAERS Safety Report 9632860 (Version 1)
Quarter: 2013Q4

REPORT INFORMATION
  Report Type: Report from Study
  Country: MX (occurrence: MX)
  Receive Date: 20131018
  Receipt Date: 20131018
  Transmission Date: 20140711
  Serious: Yes (Other)
  Sender: FDA-Public Use
  Company Number: PHHY2013MX116246

PATIENT
  Age: 58 Year
  Sex: Female

DRUGS (2)
  1. EXFORGE [Suspect]
     Indication: HYPERTENSION
     Dosage: 1 DF (160MG VALS+5MG HCT), DAILY
     Route: 048
     Dates: start: 20130828, end: 201309
  2. DIOVAN [Suspect]
     Indication: HYPERTENSION

REACTIONS (1)
  - Hyperthyroidism [Unknown]
